FAERS Safety Report 5724092-2 (Version None)
Quarter: 2008Q2

REPORT INFORMATION
  Report Type: 
  Country: None (occurrence: None)
  Receive Date: 20080430
  Receipt Date: 20080404
  Transmission Date: 20081010
  Serious: No
  Sender: FDA-Public Use
  Company Number: US-BOEHRINGER INGELHEIM GMBH, GERMANY-2008-BP-05291BP

PATIENT
  Sex: Female

DRUGS (3)
  1. ATROVENT HFA [Suspect]
     Indication: ASTHMA
     Route: 055
  2. FML [Concomitant]
  3. BETAGAN [Concomitant]

REACTIONS (2)
  - RETCHING [None]
  - VOMITING [None]
